FAERS Safety Report 24293670 (Version 1)
Quarter: 2024Q3

REPORT INFORMATION
  Report Type: Spontaneous
  Country: US (occurrence: None)
  Receive Date: 20240906
  Receipt Date: 20240906
  Transmission Date: 20241016
  Serious: No
  Sender: DOMPE FARMACEUTICI
  Company Number: US-FARMAPROD-202308-202402-0543

PATIENT
  Age: 75 Year
  Sex: Female

DRUGS (30)
  1. OXERVATE [Suspect]
     Active Substance: CENEGERMIN-BKBJ
     Indication: Neurotrophic keratopathy
     Route: 047
     Dates: start: 20240215
  2. OLANZAPINE [Concomitant]
     Active Substance: OLANZAPINE
  3. COENZYME Q-10 [Concomitant]
  4. RETAINE MGD [Concomitant]
     Active Substance: LIGHT MINERAL OIL\MINERAL OIL
     Dosage: 0.5 %-0.5% DROPERETTE
  5. RETAINE PM [Concomitant]
     Active Substance: MINERAL OIL\PETROLATUM
     Dosage: 20%-80%
  6. TRETINOIN [Concomitant]
     Active Substance: TRETINOIN
  7. CLOTRIMAZOLE-3 [Concomitant]
     Dosage: CREAM WITH APPLICATOR
  8. MOMETASONE FUROATE [Concomitant]
     Active Substance: MOMETASONE FUROATE
  9. CHONDROITIN SULFATE (BOVINE)\GLUCOSAMINE SULFATE [Concomitant]
     Active Substance: CHONDROITIN SULFATE (BOVINE)\GLUCOSAMINE SULFATE
  10. MAGNESIUM [Concomitant]
     Active Substance: MAGNESIUM
  11. OMEGA 3-6-9 COMPLEX [Concomitant]
  12. MINERALS\VITAMINS [Concomitant]
     Active Substance: MINERALS\VITAMINS
  13. MULTIVITAMIN 50 PLUS [Concomitant]
  14. MELATONIN [Concomitant]
     Active Substance: MELATONIN
  15. DMANNOSE [Concomitant]
  16. VITAMIN D3 [Concomitant]
     Active Substance: CHOLECALCIFEROL
  17. VITAMIN B12 [Concomitant]
     Active Substance: CYANOCOBALAMIN
  18. ZINC-15 [Concomitant]
  19. PROBIOTICS NOS [Concomitant]
     Active Substance: PROBIOTICS NOS
     Dosage: 10 BILLION OF CELLS
  20. MYRBETRIQ [Concomitant]
     Active Substance: MIRABEGRON
     Dosage: EXTENDED RELEASE FOR 24 HOURS
  21. OMEPRAZOLE [Concomitant]
     Active Substance: OMEPRAZOLE
  22. BUSPIRONE HCL [Concomitant]
     Active Substance: BUSPIRONE HYDROCHLORIDE
  23. BUPROPION HYDROCHLORIDE [Concomitant]
     Active Substance: BUPROPION HYDROCHLORIDE
  24. CELEBREX [Concomitant]
     Active Substance: CELECOXIB
  25. CRESTOR [Concomitant]
     Active Substance: ROSUVASTATIN CALCIUM
  26. ACETAMINOPHEN\HYDROCODONE [Concomitant]
     Active Substance: ACETAMINOPHEN\HYDROCODONE
  27. GABAPENTIN [Concomitant]
     Active Substance: GABAPENTIN
  28. METHOCARBAMOL [Concomitant]
     Active Substance: METHOCARBAMOL
  29. LEVOTHYROXINE SODIUM [Concomitant]
     Active Substance: LEVOTHYROXINE SODIUM
  30. TRAZODONE HCL [Concomitant]
     Active Substance: TRAZODONE HYDROCHLORIDE

REACTIONS (1)
  - Eye pain [Unknown]

NARRATIVE: CASE EVENT DATE: 20240216
